FAERS Safety Report 10954939 (Version 2)
Quarter: 2015Q2

REPORT INFORMATION
  Report Type: Report from Study
  Country: BR (occurrence: BR)
  Receive Date: 20150325
  Receipt Date: 20150625
  Transmission Date: 20150821
  Serious: Yes (Death, Other)
  Sender: FDA-Public Use
  Company Number: PHHY2015BR035231

PATIENT
  Age: 72 Year
  Sex: Female
  Weight: 75 kg

DRUGS (1)
  1. ONBREZ BREEZHALER [Suspect]
     Active Substance: INDACATEROL
     Indication: THROMBOSIS
     Dosage: 150 UG, QD (ONCE IN THE MORNING)
     Route: 055
     Dates: start: 201407, end: 201501

REACTIONS (4)
  - Thrombosis [Unknown]
  - Dyspnoea [Not Recovered/Not Resolved]
  - Off label use [Unknown]
  - Infarction [Fatal]

NARRATIVE: CASE EVENT DATE: 201411
